FAERS Safety Report 11623764 (Version 1)
Quarter: 2015Q4

REPORT INFORMATION
  Report Type: Spontaneous
  Country: US (occurrence: US)
  Receive Date: 20151013
  Receipt Date: 20151013
  Transmission Date: 20160304
  Serious: No
  Sender: FDA-Public Use
  Company Number: US-JNJFOC-20150909985

PATIENT
  Age: 72 Year
  Sex: Female
  Weight: 73.48 kg

DRUGS (2)
  1. WOMENS ROGAINE UNSCENTED [Suspect]
     Active Substance: MINOXIDIL
     Route: 061
  2. WOMENS ROGAINE UNSCENTED [Suspect]
     Active Substance: MINOXIDIL
     Indication: ALOPECIA
     Dosage: MORE THAN THE 1/2 CAP FULL
     Route: 061

REACTIONS (3)
  - Drug administered at inappropriate site [Unknown]
  - Drug ineffective [Unknown]
  - Incorrect dose administered [Unknown]
